FAERS Safety Report 5081011-2 (Version None)
Quarter: 2006Q3

REPORT INFORMATION
  Report Type: 
  Country: None (occurrence: None)
  Receive Date: 20060810
  Receipt Date: 20060725
  Transmission Date: 20061208
  Serious: Yes (Other)
  Sender: FDA-Public Use
  Company Number: US-2006-021461

PATIENT
  Sex: 0

DRUGS (1)
  1. CAMPATH [Suspect]
     Indication: RENAL TRANSPLANT

REACTIONS (3)
  - KIDNEY TRANSPLANT REJECTION [None]
  - RENAL FAILURE [None]
  - THROMBOCYTOPENIA [None]
